FAERS Safety Report 9482355 (Version 2)
Quarter: 2013Q3

REPORT INFORMATION
  Report Type: Spontaneous
  Country: RU (occurrence: RU)
  Receive Date: 20130828
  Receipt Date: 20130905
  Transmission Date: 20140515
  Serious: Yes (Other)
  Sender: FDA-Public Use
  Company Number: RU-BAYER-2013-102367

PATIENT
  Age: 31 Year
  Sex: Female
  Weight: 85 kg

DRUGS (2)
  1. MIRENA [Suspect]
     Indication: CONTRACEPTION
     Dosage: 20 MCG/24HR, CONT
     Route: 015
     Dates: start: 201305, end: 20130823
  2. MIRENA [Suspect]
     Indication: MENORRHAGIA

REACTIONS (5)
  - Cataract [Not Recovered/Not Resolved]
  - Ocular discomfort [Not Recovered/Not Resolved]
  - Visual acuity reduced [Not Recovered/Not Resolved]
  - Eye oedema [None]
  - Contact lens intolerance [None]
